FAERS Safety Report 6510845-X (Version None)
Quarter: 2009Q4

REPORT INFORMATION
  Report Type: 
  Country: None (occurrence: None)
  Receive Date: 20091222
  Receipt Date: 20090122
  Transmission Date: 20100525
  Serious: No
  Sender: FDA-Public Use
  Company Number: US-ASTRAZENECA-2009UW02040

PATIENT
  Age: 22355 Day
  Sex: Female
  Weight: 65.8 kg

DRUGS (3)
  1. CRESTOR [Suspect]
     Dosage: 10 MG
     Route: 048
     Dates: start: 20081223, end: 20090121
  2. LISINOPRIL [Concomitant]
  3. HYDROCHLOROTHIAZIDE [Concomitant]
     Indication: HYPERTENSION

REACTIONS (1)
  - MUSCLE SPASMS [None]
